FAERS Safety Report 15483923 (Version 1)
Quarter: 2018Q4

REPORT INFORMATION
  Report Type: Spontaneous
  Country: US (occurrence: US)
  Receive Date: 20181010
  Receipt Date: 20181010
  Transmission Date: 20190205
  Serious: Yes (Hospitalization)
  Sender: FDA-Public Use
  Company Number: None

PATIENT
  Sex: Female

DRUGS (3)
  1. AFINITOR 5MG TABLETS [Concomitant]
  2. AFINITOR [Suspect]
     Active Substance: EVEROLIMUS
     Indication: ENDOMETRIAL CANCER
     Route: 048
  3. LETROZOLE 2.5MG TABLETS [Concomitant]
     Active Substance: LETROZOLE

REACTIONS (4)
  - Dehydration [None]
  - Dizziness [None]
  - Product dose omission [None]
  - Nausea [None]
